FAERS Safety Report 24013132 (Version 2)
Quarter: 2024Q3

REPORT INFORMATION
  Report Type: Report from Study
  Country: US (occurrence: US)
  Receive Date: 20240626
  Receipt Date: 20240704
  Transmission Date: 20241017
  Serious: Yes (Death, Hospitalization, Other)
  Sender: ABBVIE
  Company Number: US-ABBVIE-5814959

PATIENT
  Sex: Female

DRUGS (1)
  1. RINVOQ [Suspect]
     Active Substance: UPADACITINIB
     Indication: Rheumatoid arthritis
     Route: 048

REACTIONS (12)
  - Sepsis [Fatal]
  - Cystitis [Fatal]
  - Constipation [Unknown]
  - Spinal fracture [Unknown]
  - Paralysis [Unknown]
  - Fall [Unknown]
  - Fluid intake reduced [Unknown]
  - Feeding disorder [Unknown]
  - Mobility decreased [Unknown]
  - Pelvic fracture [Unknown]
  - Back pain [Unknown]
  - Muscle strain [Unknown]

NARRATIVE: CASE EVENT DATE: 20240101
